FAERS Safety Report 19176293 (Version 1)
Quarter: 2021Q2

REPORT INFORMATION
  Report Type: Spontaneous
  Country: FR (occurrence: FR)
  Receive Date: 20210424
  Receipt Date: 20210424
  Transmission Date: 20210717
  Serious: Yes (Other)
  Sender: FDA-Public Use
  Company Number: FR-MACLEODS PHARMACEUTICALS US LTD-MAC2021030902

PATIENT

DRUGS (2)
  1. TRAMADOL. [Suspect]
     Active Substance: TRAMADOL
     Indication: PROCEDURAL PAIN
     Dosage: UNK, TAKING 1,000 TO 1,500 MG OF TRAMADOL
     Route: 065
     Dates: start: 2014, end: 2019
  2. CODEINE [Concomitant]
     Active Substance: CODEINE
     Indication: PROCEDURAL PAIN
     Dosage: UNK
     Route: 065

REACTIONS (6)
  - Epilepsy [Recovering/Resolving]
  - Maternal exposure during pregnancy [Recovered/Resolved]
  - Overdose [Recovered/Resolved]
  - Intentional product misuse [Recovered/Resolved]
  - Somnolence [Unknown]
  - Drug dependence [Recovering/Resolving]
